FAERS Safety Report 9408858 (Version 1)
Quarter: 2013Q3

REPORT INFORMATION
  Report Type: Spontaneous
  Country: CA (occurrence: CA)
  Receive Date: 20130719
  Receipt Date: 20130719
  Transmission Date: 20140515
  Serious: Yes (Disabling)
  Sender: FDA-Public Use
  Company Number: CA-ROCHE-1250632

PATIENT
  Age: 27 Year
  Sex: Female

DRUGS (2)
  1. MEFLOQUINE HYDROCHLORIDE [Suspect]
     Indication: PRODUCT USED FOR UNKNOWN INDICATION
     Dosage: THERAPY DURATION WAS 3.0 DAYS
     Route: 065
  2. MEFLOQUINE HYDROCHLORIDE [Suspect]
     Route: 065

REACTIONS (2)
  - Anxiety [Not Recovered/Not Resolved]
  - Nightmare [Not Recovered/Not Resolved]
